FAERS Safety Report 7007531-9 (Version None)
Quarter: 2010Q3

REPORT INFORMATION
  Report Type: 
  Country: None (occurrence: None)
  Receive Date: 20100915
  Receipt Date: 20100908
  Transmission Date: 20110219
  Serious: Yes (Hospitalization)
  Sender: FDA-Public Use
  Company Number: 2010SP048229

PATIENT
  Age: 34 Year
  Sex: Male

DRUGS (6)
  1. ORGARAN [Suspect]
     Indication: PRODUCT USED FOR UNKNOWN INDICATION
     Dosage: 750 IU QD SC
     Route: 058
     Dates: start: 20021223, end: 20021231
  2. LOVENOX [Suspect]
     Indication: PRODUCT USED FOR UNKNOWN INDICATION
     Dosage: 60 MG QD SC
     Route: 058
     Dates: start: 20021216, end: 20021223
  3. VASTEN [Concomitant]
  4. LEXOMIL [Concomitant]
  5. ZOLPIDEM TARTRATE [Concomitant]
  6. LOVENOX [Concomitant]

REACTIONS (7)
  - ARTERIAL THROMBOSIS [None]
  - CEREBRAL HAEMATOMA [None]
  - CROSS SENSITIVITY REACTION [None]
  - HEMIPLEGIA [None]
  - PULMONARY EMBOLISM [None]
  - SOMNOLENCE [None]
  - THROMBOCYTOPENIA [None]
